FAERS Safety Report 9143946 (Version 1)
Quarter: 2013Q1

REPORT INFORMATION
  Report Type: Spontaneous
  Country: US (occurrence: US)
  Receive Date: 20130306
  Receipt Date: 20130306
  Transmission Date: 20140127
  Serious: Yes (Other)
  Sender: FDA-Public Use
  Company Number: US-ASTRAZENECA-2013SE03587

PATIENT
  Age: 71 Year
  Sex: Female
  Weight: 75.3 kg

DRUGS (2)
  1. BRILINTA [Suspect]
     Route: 048
  2. PLAVIX [Suspect]
     Route: 065

REACTIONS (3)
  - Asthenia [Recovered/Resolved]
  - Dyspnoea [Recovered/Resolved]
  - Drug hypersensitivity [Unknown]
